FAERS Safety Report 9790025 (Version 2)
Quarter: 2014Q1

REPORT INFORMATION
  Report Type: Spontaneous
  Country: FR (occurrence: JP)
  Receive Date: 20131231
  Receipt Date: 20140103
  Transmission Date: 20141002
  Serious: Yes (Other)
  Sender: FDA-Public Use
  Company Number: JP-FRI-1000052568

PATIENT
  Age: 69 Year
  Sex: Male

DRUGS (7)
  1. ACAMPROSATE [Suspect]
     Indication: ALCOHOLISM
     Dosage: 1998 MG
     Route: 048
     Dates: start: 20130530, end: 20130628
  2. NOCBIN [Concomitant]
     Dates: start: 20130530, end: 20130628
  3. NITRAZEPAM [Concomitant]
     Dates: start: 20121220, end: 20130628
  4. EVAMYL [Concomitant]
     Dates: start: 20121220, end: 20130628
  5. COUGHNOL [Concomitant]
     Dates: start: 20130430, end: 20130628
  6. CLARITIN [Concomitant]
     Dates: start: 20121226, end: 20130628
  7. MUCOSTA [Concomitant]
     Dates: start: 20121227, end: 20130628

REACTIONS (1)
  - Delirium [Recovered/Resolved]
